FAERS Safety Report 10036371 (Version 1)
Quarter: 2014Q1

REPORT INFORMATION
  Report Type: Spontaneous
  Country: SE (occurrence: SE)
  Receive Date: 20140325
  Receipt Date: 20140325
  Transmission Date: 20141002
  Serious: Yes (Death, Other)
  Sender: FDA-Public Use
  Company Number: PHHY2014SE031236

PATIENT
  Age: 11 Year
  Sex: Female

DRUGS (6)
  1. CARBOPLATIN [Suspect]
     Indication: NEPHROBLASTOMA
     Dosage: 3.6 G/M2
  2. IFOSFAMIDE [Suspect]
     Indication: NEPHROBLASTOMA
     Dosage: 27 G/M2
  3. TEMOZOLOMIDE [Suspect]
     Indication: NEPHROBLASTOMA
     Dosage: 570 MG/M2, UNK
  4. THIOTEPA [Suspect]
     Indication: NEPHROBLASTOMA
     Dosage: 10 MG/M2, UNK
  5. MELPHALAN [Suspect]
     Indication: NEPHROBLASTOMA
     Dosage: 120 MG/M2, UNK
  6. RADIATION [Suspect]
     Indication: NEPHROBLASTOMA

REACTIONS (4)
  - Nephroblastoma [Fatal]
  - Ovarian disorder [Not Recovered/Not Resolved]
  - Blood follicle stimulating hormone increased [Not Recovered/Not Resolved]
  - Blood luteinising hormone increased [Not Recovered/Not Resolved]
